FAERS Safety Report 5221953-8 (Version None)
Quarter: 2007Q1

REPORT INFORMATION
  Report Type: 
  Country: None (occurrence: None)
  Receive Date: 20070129
  Receipt Date: 20060201
  Transmission Date: 20070707
  Serious: No
  Sender: FDA-Public Use
  Company Number: US-GLAXOSMITHKLINE-A0591902A

PATIENT
  Age: 51 Year
  Sex: Male

DRUGS (6)
  1. BUPROPION HYDROCHLORIDE [Suspect]
     Dosage: 150MG TWICE PER DAY
     Route: 048
     Dates: start: 20040101, end: 20040101
  2. ZYBAN [Suspect]
     Dosage: 150MG TWICE PER DAY
     Route: 048
     Dates: start: 20031201, end: 20040101
  3. LIPITOR [Concomitant]
  4. STEROIDS [Concomitant]
  5. PAIN MEDICATION [Concomitant]
  6. ZETIA [Concomitant]

REACTIONS (4)
  - DRUG INEFFECTIVE [None]
  - DRY MOUTH [None]
  - INSOMNIA [None]
  - MYALGIA [None]
